FAERS Safety Report 13258647 (Version 1)
Quarter: 2017Q1

REPORT INFORMATION
  Report Type: Spontaneous
  Country: GB (occurrence: GB)
  Receive Date: 20170222
  Receipt Date: 20170222
  Transmission Date: 20170428
  Serious: Yes (Hospitalization, Other)
  Sender: FDA-Public Use
  Company Number: GB-ACCORD-048320

PATIENT
  Age: 73 Year
  Sex: Male

DRUGS (12)
  1. ALLOPURINOL. [Suspect]
     Active Substance: ALLOPURINOL
     Indication: PROPHYLAXIS
     Route: 048
  2. ANADIN PARACETAMOL [Concomitant]
     Active Substance: ACETAMINOPHEN
  3. COLCHICINE. [Concomitant]
     Active Substance: COLCHICINE
  4. CANDESARTAN [Concomitant]
     Active Substance: CANDESARTAN
  5. DIGOXIN. [Concomitant]
     Active Substance: DIGOXIN
  6. LANSOPRAZOLE CHEMILINES [Concomitant]
  7. DOXAZOSIN [Concomitant]
     Active Substance: DOXAZOSIN\DOXAZOSIN MESYLATE
  8. BECLOMETASONE [Concomitant]
     Active Substance: BECLOMETHASONE DIPROPIONATE
  9. BISOPROLOL [Concomitant]
     Active Substance: BISOPROLOL
  10. WARFARIN NORTON PHARMS [Interacting]
     Active Substance: WARFARIN
     Indication: PRODUCT USED FOR UNKNOWN INDICATION
  11. SALBUTAMOL ACTAVIS UK [Concomitant]
  12. SPIRONOLACTONE ACTAVIS UK [Concomitant]

REACTIONS (2)
  - International normalised ratio increased [Recovering/Resolving]
  - Drug interaction [Unknown]
